FAERS Safety Report 6368001-4 (Version None)
Quarter: 2009Q3

REPORT INFORMATION
  Report Type: 
  Country: None (occurrence: None)
  Receive Date: 20090922
  Receipt Date: 20090916
  Transmission Date: 20100115
  Serious: No
  Sender: FDA-Public Use
  Company Number: US-JNJFOC-20090905526

PATIENT
  Sex: Male
  Weight: 85.73 kg

DRUGS (1)
  1. DURAGESIC-100 [Suspect]
     Indication: BACK PAIN
     Route: 062
     Dates: start: 20080101

REACTIONS (1)
  - DRUG ADMINISTERED AT INAPPROPRIATE SITE [None]
